FAERS Safety Report 19708423 (Version 1)
Quarter: 2021Q3

REPORT INFORMATION
  Report Type: Spontaneous
  Country: CN (occurrence: CN)
  Receive Date: 20210817
  Receipt Date: 20210817
  Transmission Date: 20211014
  Serious: Yes (Life-Threatening, Other)
  Sender: FDA-Public Use
  Company Number: CN-009507513-2108CHN003578

PATIENT
  Age: 64 Year
  Sex: Female
  Weight: 76.6 kg

DRUGS (2)
  1. TIENAM [Suspect]
     Active Substance: CILASTATIN SODIUM\IMIPENEM
     Indication: PERITONITIS
     Dosage: DOSE: 50 MG, FREQUENCY: TWICE A DAY (BID)
     Route: 033
     Dates: start: 20210720, end: 20210804
  2. PERITONEAL DIALYSIS SOLUTION (LACTATE?G2.5%) [Concomitant]
     Indication: PERITONEAL DIALYSIS
     Dosage: DOSE: 2000 ML, FREQUENCY: ONCE DAILY
     Dates: start: 20210720, end: 20210804

REACTIONS (3)
  - Epilepsy [Recovered/Resolved]
  - Incorrect route of product administration [Unknown]
  - Fatigue [Recovering/Resolving]

NARRATIVE: CASE EVENT DATE: 20210720
